FAERS Safety Report 26121169 (Version 1)
Quarter: 2025Q4

REPORT INFORMATION
  Report Type: Spontaneous
  Country: EU (occurrence: EU)
  Receive Date: 20251204
  Receipt Date: 20251204
  Transmission Date: 20260118
  Serious: Yes (Other)
  Sender: BAUSCH AND LOMB
  Company Number: EU-AMGEN-FRASP2025232022

PATIENT
  Age: 77 Year
  Sex: Male

DRUGS (3)
  1. DEXAMETHASONE SODIUM PHOSPHATE [Suspect]
     Active Substance: DEXAMETHASONE SODIUM PHOSPHATE
     Indication: Plasma cell myeloma refractory
     Dosage: UNK
  2. CARFILZOMIB [Suspect]
     Active Substance: CARFILZOMIB
     Indication: Plasma cell myeloma refractory
     Dosage: UNK
  3. POMALIDOMIDE [Suspect]
     Active Substance: POMALIDOMIDE
     Indication: Plasma cell myeloma refractory
     Dosage: UNK

REACTIONS (3)
  - Electrocardiogram QT prolonged [Unknown]
  - Atrial fibrillation [Unknown]
  - Off label use [Unknown]
